FAERS Safety Report 13133026 (Version 3)
Quarter: 2017Q1

REPORT INFORMATION
  Report Type: Spontaneous
  Country: IT (occurrence: IT)
  Receive Date: 20170120
  Receipt Date: 20170215
  Transmission Date: 20170428
  Serious: Yes (Hospitalization)
  Sender: FDA-Public Use
  Company Number: IT-ROCHE-1799496

PATIENT
  Age: 74 Year
  Sex: Female

DRUGS (10)
  1. BONVIVA [Concomitant]
     Active Substance: IBANDRONATE SODIUM
  2. LANSOPRAZOLE. [Concomitant]
     Active Substance: LANSOPRAZOLE
  3. ELOPRAM [Concomitant]
     Active Substance: CITALOPRAM HYDROBROMIDE
  4. LASIX [Concomitant]
     Active Substance: FUROSEMIDE
  5. ROACTEMRA [Suspect]
     Active Substance: TOCILIZUMAB
     Indication: RHEUMATOID ARTHRITIS
     Route: 042
     Dates: start: 20160201
  6. ROACTEMRA [Suspect]
     Active Substance: TOCILIZUMAB
     Route: 042
  7. ROACTEMRA [Suspect]
     Active Substance: TOCILIZUMAB
     Route: 042
  8. DIDROGYL [Concomitant]
     Active Substance: CALCIFEDIOL
     Dosage: 0.15 MG/ML ORAL DROPS, SOLUTION^
     Route: 065
  9. CARDIRENE [Concomitant]
     Active Substance: ASPIRIN DL-LYSINE
  10. URBASON [Concomitant]
     Active Substance: METHYLPREDNISOLONE
     Dosage: 1 VIAL 8 MG + 1 VIAL 1 ML
     Route: 065

REACTIONS (4)
  - Conjunctival haemorrhage [Recovered/Resolved]
  - Swelling [Recovering/Resolving]
  - Localised infection [Recovering/Resolving]
  - Hypertensive crisis [Recovered/Resolved]

NARRATIVE: CASE EVENT DATE: 20160329
